FAERS Safety Report 19226994 (Version 1)
Quarter: 2021Q2

REPORT INFORMATION
  Report Type: Report from Study
  Country: None (occurrence: CA)
  Receive Date: 20210507
  Receipt Date: 20210507
  Transmission Date: 20210717
  Serious: Yes (Other)
  Sender: FDA-Public Use
  Company Number: CA-ABBVIE-21K-028-3889938-00

PATIENT
  Age: 64 Year
  Sex: Female

DRUGS (2)
  1. ASTRAZENECA COVID?19 VACCINE [Suspect]
     Active Substance: AZD-1222
     Indication: COVID-19 IMMUNISATION
     Dosage: ASTRA ZENECA
     Route: 065
     Dates: start: 20210426, end: 20210426
  2. RINVOQ [Suspect]
     Active Substance: UPADACITINIB
     Indication: RHEUMATOID ARTHRITIS
     Route: 048

REACTIONS (6)
  - Pyrexia [Recovered/Resolved]
  - Cataract [Unknown]
  - Myalgia [Unknown]
  - Chills [Unknown]
  - Macular degeneration [Unknown]
  - Illness [Unknown]

NARRATIVE: CASE EVENT DATE: 202104
